FAERS Safety Report 16692969 (Version 1)
Quarter: 2019Q3

REPORT INFORMATION
  Report Type: Spontaneous
  Country: NL (occurrence: NL)
  Receive Date: 20190812
  Receipt Date: 20190812
  Transmission Date: 20191004
  Serious: Yes (Other)
  Sender: FDA-Public Use
  Company Number: NL-AMGEN-NLDNI2019125423

PATIENT
  Age: 68 Year
  Sex: Male

DRUGS (3)
  1. ADALIMUMAB [Suspect]
     Active Substance: ADALIMUMAB
     Indication: RHEUMATOID ARTHRITIS
     Dosage: 40 MILLIGRAM, Q2WK
     Route: 058
     Dates: start: 20190528, end: 20190618
  2. HYDROXYCHLOROQUINE [Concomitant]
     Active Substance: HYDROXYCHLOROQUINE
     Dosage: 200MG, 2X/D
     Route: 048
     Dates: start: 20181107
  3. TRIAMCINOLON [TRIAMCINOLONE] [Concomitant]
     Dosage: 120MG, EENMALIG
     Route: 030
     Dates: start: 20190618, end: 20190618

REACTIONS (2)
  - Cutaneous lupus erythematosus [Recovered/Resolved]
  - Photosensitivity reaction [Recovered/Resolved]

NARRATIVE: CASE EVENT DATE: 20190618
